FAERS Safety Report 10886354 (Version 2)
Quarter: 2015Q2

REPORT INFORMATION
  Report Type: Spontaneous
  Country: US (occurrence: None)
  Receive Date: 20150227
  Receipt Date: 20150501
  Transmission Date: 20150821
  Serious: Yes (Disabling, Other)
  Sender: FDA-Public Use
  Company Number: 2015-10753

PATIENT
  Age: 85 Year
  Sex: Female
  Weight: 63.5 kg

DRUGS (10)
  1. OCUVITE /01053801/ (ASCORBIC ACID, RETINOL, TOCOPHEROL) [Concomitant]
  2. PAPAYA ENZYME /00389401/ (PAPAIN) [Concomitant]
  3. CALCIUM ??? [Concomitant]
  4. MIRALAX /00754501/ (MACROGOL) [Concomitant]
  5. GINKO BILOBA (GINKGO BILOBA) [Concomitant]
  6. REFRESH /00880201/ (POLYVINYL ALCOHOL, POVIDONE) [Concomitant]
  7. SPIRIVA (TIOTROPIUM BROMIDE) [Concomitant]
  8. HCTZ (HYDROCHLOROTHIAZIDE) [Concomitant]
     Active Substance: HYDROCHLOROTHIAZIDE
  9. EYLEA [Suspect]
     Active Substance: AFLIBERCEPT
     Indication: AGE-RELATED MACULAR DEGENERATION
     Dosage: 2 MG MILLIGRAM(S), IN OS EVERY 5 WEEKS, INTRAOCULAR
     Route: 031
     Dates: start: 20120613
  10. AMLODIPINE ??? [Concomitant]

REACTIONS (4)
  - Vitreous floaters [None]
  - Endophthalmitis [None]
  - Blindness transient [None]
  - Vision blurred [None]

NARRATIVE: CASE EVENT DATE: 201502
